FAERS Safety Report 5061678-5 (Version None)
Quarter: 2006Q3

REPORT INFORMATION
  Report Type: 
  Country: None (occurrence: None)
  Receive Date: 20060726
  Receipt Date: 20060623
  Transmission Date: 20061208
  Serious: Yes (Hospitalization)
  Sender: FDA-Public Use
  Company Number: FR-SP-2006-01573

PATIENT
  Age: 72 Year
  Sex: Male
  Weight: 76 kg

DRUGS (5)
  1. IMMUCYST [Suspect]
     Indication: BLADDER CANCER
     Route: 065
     Dates: start: 20060112
  2. IMMUCYST [Suspect]
     Route: 065
     Dates: start: 20060112
  3. IMMUCYST [Suspect]
     Route: 065
     Dates: start: 20060112
  4. PLAVIX [Concomitant]
     Indication: ATRIAL FIBRILLATION
     Dosage: 1/DAY
     Route: 048
     Dates: start: 20030101
  5. FLECAINE LP (FLECAINIDE) [Concomitant]
     Indication: ATRIAL FIBRILLATION
     Dosage: 1/DAY
     Route: 048
     Dates: start: 20050401

REACTIONS (8)
  - BOVINE TUBERCULOSIS [None]
  - CHILLS [None]
  - CYSTITIS HAEMORRHAGIC [None]
  - FACE OEDEMA [None]
  - HERPES SIMPLEX [None]
  - HYPERHIDROSIS [None]
  - PYREXIA [None]
  - URTICARIA [None]
